FAERS Safety Report 25119738 (Version 5)
Quarter: 2025Q3

REPORT INFORMATION
  Report Type: Report from Study
  Country: CA (occurrence: CA)
  Receive Date: 20250325
  Receipt Date: 20250721
  Transmission Date: 20251020
  Serious: Yes (Other)
  Sender: UCB
  Company Number: CA-UCBSA-2025015634

PATIENT
  Sex: Male

DRUGS (2)
  1. CERTOLIZUMAB PEGOL [Suspect]
     Active Substance: CERTOLIZUMAB PEGOL
     Indication: Ankylosing spondylitis
     Dosage: 400 MILLIGRAM, EV 2 WEEKS(QOW)
     Route: 058
     Dates: start: 20150407
  2. CERTOLIZUMAB PEGOL [Suspect]
     Active Substance: CERTOLIZUMAB PEGOL
     Dosage: 400 MILLIGRAM, EV 4 WEEKS
     Route: 058
     Dates: end: 20250612

REACTIONS (10)
  - Abdominal pain [Unknown]
  - Ankylosing spondylitis [Unknown]
  - Surgery [Recovering/Resolving]
  - Fall [Unknown]
  - Skin laceration [Unknown]
  - Thermal burn [Unknown]
  - Exostosis [Unknown]
  - Intervertebral disc protrusion [Unknown]
  - Product availability issue [Unknown]
  - Therapy interrupted [Unknown]

NARRATIVE: CASE EVENT DATE: 20250101
